FAERS Safety Report 21861126 (Version 1)
Quarter: 2023Q1

REPORT INFORMATION
  Report Type: Spontaneous
  Country: CN (occurrence: CN)
  Receive Date: 20230113
  Receipt Date: 20230113
  Transmission Date: 20230418
  Serious: Yes (Other)
  Sender: FDA-Public Use
  Company Number: None

PATIENT
  Age: 47 Year
  Sex: Female
  Weight: 51 kg

DRUGS (14)
  1. CYCLOPHOSPHAMIDE [Suspect]
     Active Substance: CYCLOPHOSPHAMIDE
     Indication: Invasive breast carcinoma
     Dosage: AT 08:44, 0.8 G, QD, DILUTED WITH 100 ML OF 0.9% SODIUM CHLORIDE INJECTION, AS A PART OF EC-T REGIME
     Route: 041
     Dates: start: 20221208, end: 20221208
  2. CYCLOPHOSPHAMIDE [Suspect]
     Active Substance: CYCLOPHOSPHAMIDE
     Indication: Neoplasm malignant
  3. CYCLOPHOSPHAMIDE [Suspect]
     Active Substance: CYCLOPHOSPHAMIDE
     Indication: Chemotherapy
  4. SODIUM CHLORIDE [Suspect]
     Active Substance: SODIUM CHLORIDE
     Indication: Medication dilution
     Dosage: AT 8:44, 100 ML, QD, USED TO DILUTE 135 MG OF PHARMORUBICIN, AS A PART OF EC-T REGIMEN (3RD CHEMOTHE
     Route: 041
     Dates: start: 20221208, end: 20221208
  5. EPIRUBICIN [Suspect]
     Active Substance: EPIRUBICIN
     Indication: Invasive breast carcinoma
     Dosage: AT 8:44, 135 MG, QD, DILUTED WITH 100 ML OF 0.9% SODIUM CHLORIDE, AS A PART OF EC-T REGIMEN (3RD CHE
     Route: 041
     Dates: start: 20221208, end: 20221208
  6. EPIRUBICIN [Suspect]
     Active Substance: EPIRUBICIN
     Indication: Neoplasm malignant
  7. EPIRUBICIN [Suspect]
     Active Substance: EPIRUBICIN
     Indication: Chemotherapy
  8. DOCETAXEL [Suspect]
     Active Substance: DOCETAXEL
     Indication: Invasive breast carcinoma
     Dosage: AS A PART OF EC-T REGIMEN (3RD CHEMOTHERAPY)
     Route: 065
     Dates: start: 20221208
  9. DOCETAXEL [Suspect]
     Active Substance: DOCETAXEL
     Indication: Neoplasm malignant
  10. DOCETAXEL [Suspect]
     Active Substance: DOCETAXEL
     Indication: Chemotherapy
  11. SODIUM CHLORIDE [Suspect]
     Active Substance: SODIUM CHLORIDE
     Indication: Neoplasm malignant
     Dosage: AT 8:44, 100 ML, QD, USED TO DILUTE 0.8 G OF CYCLOPHOSPHAMIDE, AS A PART OF EC-T REGIMEN (3RD CHEMOT
     Route: 041
     Dates: start: 20221208, end: 20221208
  12. SODIUM CHLORIDE [Suspect]
     Active Substance: SODIUM CHLORIDE
     Indication: Chemotherapy
  13. GRANULOCYTE COLONY-STIMULATING FACTOR NOS [Concomitant]
     Active Substance: GRANULOCYTE COLONY-STIMULATING FACTOR NOS
     Indication: Myelosuppression
     Dosage: 150 UG
     Route: 058
     Dates: start: 20221211
  14. GRANULOCYTE COLONY-STIMULATING FACTOR NOS [Concomitant]
     Active Substance: GRANULOCYTE COLONY-STIMULATING FACTOR NOS
     Indication: Prophylaxis

REACTIONS (2)
  - White blood cell count decreased [Recovering/Resolving]
  - Neutrophil count decreased [Recovering/Resolving]

NARRATIVE: CASE EVENT DATE: 20221216
